FAERS Safety Report 14258016 (Version 2)
Quarter: 2017Q4

REPORT INFORMATION
  Report Type: Report from Study
  Country: US (occurrence: US)
  Receive Date: 20171207
  Receipt Date: 20171219
  Transmission Date: 20180321
  Serious: Yes (Death, Hospitalization, Other)
  Sender: FDA-Public Use
  Company Number: US-ROCHE-2022850

PATIENT
  Age: 67 Year
  Sex: Male
  Weight: 62.5 kg

DRUGS (2)
  1. ATEZOLIZUMAB. [Suspect]
     Active Substance: ATEZOLIZUMAB
     Indication: RENAL CELL CARCINOMA
     Dosage: LAST TREATMENT ON 31/OCT/2017
     Route: 042
     Dates: start: 20170316
  2. BEVACIZUMAB. [Suspect]
     Active Substance: BEVACIZUMAB
     Indication: RENAL CELL CARCINOMA
     Dosage: LAST TREATMENT ON 31/OCT/2017
     Route: 042
     Dates: start: 20170316

REACTIONS (10)
  - Alanine aminotransferase increased [Unknown]
  - Aspartate aminotransferase increased [Unknown]
  - Decreased appetite [Unknown]
  - Anaemia [Unknown]
  - Fatigue [Unknown]
  - Colitis [Unknown]
  - Death [Fatal]
  - Pain in extremity [Unknown]
  - Confusional state [Unknown]
  - Failure to thrive [Unknown]

NARRATIVE: CASE EVENT DATE: 20171107
